FAERS Safety Report 16376056 (Version 1)
Quarter: 2019Q2

REPORT INFORMATION
  Report Type: Spontaneous
  Country: DK (occurrence: DK)
  Receive Date: 20190531
  Receipt Date: 20190531
  Transmission Date: 20190711
  Serious: Yes (Hospitalization)
  Sender: FDA-Public Use
  Company Number: DK-ACCORD-130182

PATIENT
  Age: 71 Year
  Sex: Male

DRUGS (10)
  1. GLYTRIN [Concomitant]
     Indication: CHEST PAIN
     Dosage: STRENGTH: 0.4MG / DOSE DOSE: 1 PUFF AS NEEDED UNDER THE TONGUE AT PAIN
     Route: 060
     Dates: start: 20160603
  2. PARACETAMOL [Concomitant]
     Active Substance: ACETAMINOPHEN
     Indication: PAIN
     Dosage: STRENGTH: 500 MG
     Route: 048
     Dates: start: 20161206
  3. HJERDYL [Concomitant]
     Active Substance: ASPIRIN
     Indication: THROMBOSIS PROPHYLAXIS
     Dosage: STRENGTH: 75MG
     Route: 048
     Dates: start: 20170602
  4. ATORVASTATIN [Concomitant]
     Active Substance: ATORVASTATIN
     Indication: CARDIOVASCULAR EVENT PROPHYLAXIS
     Dosage: STRENGTH: 80 MG
     Route: 048
     Dates: start: 20140527
  5. ZOLEDRONIC ACID [Suspect]
     Active Substance: ZOLEDRONIC ACID
     Indication: BONE DISORDER
     Dosage: STRENGTH: 4 MG/100 ML
     Route: 042
     Dates: start: 201612, end: 20181129
  6. ZOPICLONE [Concomitant]
     Active Substance: ZOPICLONE
     Indication: INSOMNIA
     Route: 048
     Dates: start: 20170602
  7. METOPROLOL TARTRATE. [Concomitant]
     Active Substance: METOPROLOL TARTRATE
     Indication: THROMBOSIS PROPHYLAXIS
     Dosage: STRENGTH: 25MG
     Route: 048
     Dates: start: 20150323
  8. PANTOPRAZOLE [Concomitant]
     Active Substance: PANTOPRAZOLE
     Indication: GASTROOESOPHAGEAL REFLUX PROPHYLAXIS
     Dosage: STRENGTH: 20MG
     Route: 048
     Dates: start: 20171113
  9. CONTALGIN [Concomitant]
     Active Substance: MORPHINE SULFATE
     Indication: PAIN
     Dosage: STRENGTH: 10MG
     Route: 048
     Dates: start: 20161206
  10. LOSARTAN. [Concomitant]
     Active Substance: LOSARTAN
     Indication: HYPERTENSION
     Dosage: STRENGTH: 50MG
     Route: 048
     Dates: start: 20151113

REACTIONS (5)
  - Impaired healing [Unknown]
  - Oral pain [Unknown]
  - Exposed bone in jaw [Unknown]
  - Purulence [Unknown]
  - Osteonecrosis of jaw [Not Recovered/Not Resolved]

NARRATIVE: CASE EVENT DATE: 2018
